FAERS Safety Report 5920920-6 (Version None)
Quarter: 2008Q4

REPORT INFORMATION
  Report Type: 
  Country: None (occurrence: None)
  Receive Date: 20081016
  Receipt Date: 20081014
  Transmission Date: 20090506
  Serious: Yes (Other)
  Sender: FDA-Public Use
  Company Number: A0743237A

PATIENT
  Age: 41 Year
  Sex: Female
  Weight: 71.8 kg

DRUGS (1)
  1. ALLI [Suspect]
     Indication: WEIGHT LOSS DIET
     Route: 048

REACTIONS (4)
  - CONSTIPATION [None]
  - DEPENDENCE [None]
  - INFREQUENT BOWEL MOVEMENTS [None]
  - PRODUCT QUALITY ISSUE [None]
